FAERS Safety Report 7539753-2 (Version None)
Quarter: 2011Q2

REPORT INFORMATION
  Report Type: 
  Country: None (occurrence: None)
  Receive Date: 20110610
  Receipt Date: 20110531
  Transmission Date: 20111010
  Serious: Yes (Other)
  Sender: FDA-Public Use
  Company Number: PHHY2011US28089

PATIENT
  Sex: Female

DRUGS (4)
  1. TYLENOL-500 [Concomitant]
     Indication: HEADACHE
  2. VITAMIN TAB [Concomitant]
  3. TOPROL-XL [Concomitant]
     Dosage: 100 MG, QD
  4. DIOVAN HCT [Suspect]
     Dosage: 1 DF, 160/12.5 MG

REACTIONS (6)
  - FEELING ABNORMAL [None]
  - UPPER LIMB FRACTURE [None]
  - CLAVICLE FRACTURE [None]
  - DIZZINESS [None]
  - FALL [None]
  - HEADACHE [None]
